FAERS Safety Report 5943276-1 (Version None)
Quarter: 2008Q4

REPORT INFORMATION
  Report Type: 
  Country: None (occurrence: None)
  Receive Date: 20081105
  Receipt Date: 20081105
  Transmission Date: 20090506
  Serious: Yes (Other)
  Sender: FDA-Public Use
  Company Number: None

PATIENT
  Age: 47 Year
  Sex: Female
  Weight: 113.3993 kg

DRUGS (2)
  1. CHANTIX [Suspect]
     Indication: TOBACCO USER
     Dosage: 0.5MG 1 TAB DAILY 3 DAYS PO
     Route: 048
     Dates: start: 20081001, end: 20081021
  2. VARENICILINE 1MG [Suspect]
     Dosage: 1MG 1 TAB 2 TIMES DAILY PO
     Route: 048

REACTIONS (1)
  - SUICIDAL IDEATION [None]
